FAERS Safety Report 7504555-X (Version None)
Quarter: 2011Q2

REPORT INFORMATION
  Report Type: 
  Country: None (occurrence: None)
  Receive Date: 20110525
  Receipt Date: 20110517
  Transmission Date: 20111010
  Serious: Yes (Hospitalization)
  Sender: FDA-Public Use
  Company Number: US-AMGEN-USASP2011025506

PATIENT
  Age: 65 Year
  Sex: Female

DRUGS (2)
  1. PREDNISONE [Concomitant]
  2. ENBREL [Suspect]
     Indication: RHEUMATOID ARTHRITIS
     Dosage: 25 MG, 2 TIMES/WK
     Dates: start: 20030601

REACTIONS (6)
  - FINGER DEFORMITY [None]
  - BLOOD GLUCOSE INCREASED [None]
  - MOBILITY DECREASED [None]
  - HAND DEFORMITY [None]
  - ARTHRALGIA [None]
  - RHEUMATOID ARTHRITIS [None]
